FAERS Safety Report 13665943 (Version 2)
Quarter: 2017Q3

REPORT INFORMATION
  Report Type: Spontaneous
  Country: BR (occurrence: BR)
  Receive Date: 20170619
  Receipt Date: 20170705
  Transmission Date: 20171127
  Serious: Yes (Other)
  Sender: FDA-Public Use
  Company Number: BR-SA-2017SA107388

PATIENT
  Age: 71 Year
  Sex: Female
  Weight: 69 kg

DRUGS (6)
  1. VITAMIN D3 [Concomitant]
     Active Substance: CHOLECALCIFEROL
     Indication: HYPOVITAMINOSIS
     Route: 048
     Dates: start: 2015
  2. NPH INSULIN [Concomitant]
     Active Substance: INSULIN BEEF
     Route: 065
  3. LANTUS [Suspect]
     Active Substance: INSULIN GLARGINE
     Indication: TYPE 2 DIABETES MELLITUS
     Route: 058
     Dates: start: 20140414
  4. HUMALOG [Concomitant]
     Active Substance: INSULIN LISPRO
     Indication: DIABETES MELLITUS
     Dosage: 5 TIMES PER DAY, EACH TIME 5 IU
     Route: 058
     Dates: start: 20140414
  5. GLIFAGE XR [Concomitant]
     Active Substance: METFORMIN HYDROCHLORIDE
     Indication: BLOOD GLUCOSE INCREASED
     Dosage: 1 AT LUNCH AND 1 AT DINNER
     Route: 048
     Dates: start: 2013
  6. ARADOIS [Concomitant]
     Active Substance: LOSARTAN POTASSIUM
     Indication: BLOOD PRESSURE MEASUREMENT
     Route: 048
     Dates: start: 2015

REACTIONS (4)
  - Blindness transient [Recovering/Resolving]
  - Panic disorder [Unknown]
  - Blood glucose increased [Unknown]
  - Nervousness [Unknown]

NARRATIVE: CASE EVENT DATE: 201705
